FAERS Safety Report 10793978 (Version 2)
Quarter: 2015Q1

REPORT INFORMATION
  Report Type: Spontaneous
  Country: US (occurrence: US)
  Receive Date: 20150213
  Receipt Date: 20150310
  Transmission Date: 20150721
  Serious: Yes (Hospitalization)
  Sender: FDA-Public Use
  Company Number: US-PFIZER INC-2015056642

PATIENT
  Age: 65 Year
  Sex: Female

DRUGS (3)
  1. CLIMARA [Concomitant]
     Active Substance: ESTRADIOL
     Dosage: UNK
     Dates: start: 2010
  2. ESTRING [Suspect]
     Active Substance: ESTRADIOL
     Indication: CERVIX DISORDER
     Dosage: 2 MG, UNK
     Dates: start: 2010, end: 20141203
  3. CLIMARA PRO [Concomitant]
     Active Substance: ESTRADIOL\LEVONORGESTREL
     Dosage: UNK
     Dates: start: 2010

REACTIONS (2)
  - Precancerous cells present [Recovered/Resolved]
  - Uterine disorder [Recovered/Resolved]

NARRATIVE: CASE EVENT DATE: 201412
